FAERS Safety Report 24539105 (Version 1)
Quarter: 2024Q4

REPORT INFORMATION
  Report Type: Report from Study
  Country: US (occurrence: US)
  Receive Date: 20241023
  Receipt Date: 20241023
  Transmission Date: 20250114
  Serious: Yes (Death)
  Sender: MYLAN
  Company Number: US-MYLANLABS-2024M1095901

PATIENT
  Age: 76 Year
  Sex: Male

DRUGS (9)
  1. DOXORUBICIN [Suspect]
     Active Substance: DOXORUBICIN
     Indication: Myxoid liposarcoma
     Dosage: UNK
     Route: 065
  2. DOXORUBICIN [Suspect]
     Active Substance: DOXORUBICIN
     Indication: Metastases to lung
  3. DOXORUBICIN [Suspect]
     Active Substance: DOXORUBICIN
     Indication: Metastases to bone
  4. MITOMYCIN C [Suspect]
     Active Substance: MITOMYCIN
     Indication: Myxoid liposarcoma
     Dosage: UNK
     Route: 065
  5. MITOMYCIN C [Suspect]
     Active Substance: MITOMYCIN
     Indication: Metastases to lung
  6. MITOMYCIN C [Suspect]
     Active Substance: MITOMYCIN
     Indication: Metastases to bone
  7. CISPLATIN [Suspect]
     Active Substance: CISPLATIN
     Indication: Myxoid liposarcoma
     Dosage: UNK
     Route: 065
  8. CISPLATIN [Suspect]
     Active Substance: CISPLATIN
     Indication: Metastases to lung
  9. CISPLATIN [Suspect]
     Active Substance: CISPLATIN
     Indication: Metastases to bone

REACTIONS (1)
  - Drug ineffective [Fatal]
